FAERS Safety Report 9351768 (Version 1)
Quarter: 2013Q2

REPORT INFORMATION
  Report Type: Spontaneous
  Country: US (occurrence: US)
  Receive Date: 20130617
  Receipt Date: 20130617
  Transmission Date: 20140414
  Serious: Yes (Hospitalization)
  Sender: FDA-Public Use
  Company Number: US-BIOGENIDEC-2013BI051376

PATIENT
  Age: 33 Year
  Sex: Female

DRUGS (1)
  1. AVONEX [Suspect]
     Indication: MULTIPLE SCLEROSIS
     Route: 030
     Dates: start: 19970601, end: 20050421

REACTIONS (6)
  - Intracranial aneurysm [Recovered/Resolved]
  - Antibody test [Unknown]
  - Abasia [Unknown]
  - Multiple sclerosis [Not Recovered/Not Resolved]
  - Lethargy [Recovered/Resolved]
  - Influenza like illness [Recovered/Resolved]
